FAERS Safety Report 22641333 (Version 1)
Quarter: 2023Q2

REPORT INFORMATION
  Report Type: Spontaneous
  Country: US (occurrence: US)
  Receive Date: 20230626
  Receipt Date: 20230626
  Transmission Date: 20230721
  Serious: No
  Sender: FDA-Public Use
  Company Number: US-SA-SAC20230621000025

PATIENT
  Sex: Female

DRUGS (1)
  1. DUPIXENT [Suspect]
     Active Substance: DUPILUMAB
     Indication: Dermatitis
     Dosage: DOSE OR AMOUNT: 300MG FREQUENCY: OTHER
     Route: 058

REACTIONS (3)
  - Dermatitis [Unknown]
  - Herpes zoster [Recovering/Resolving]
  - Drug ineffective for unapproved indication [Unknown]
